FAERS Safety Report 17380717 (Version 2)
Quarter: 2020Q2

REPORT INFORMATION
  Report Type: Spontaneous
  Country: JP (occurrence: JP)
  Receive Date: 20200206
  Receipt Date: 20200626
  Transmission Date: 20200713
  Serious: Yes (Death, Hospitalization)
  Sender: FDA-Public Use
  Company Number: JP-ELI_LILLY_AND_COMPANY-JP202002001421

PATIENT
  Age: 65 Year
  Sex: Male
  Weight: 50 kg

DRUGS (4)
  1. ABRAXANE [Concomitant]
     Active Substance: PACLITAXEL
     Indication: ADENOCARCINOMA GASTRIC
     Dosage: 185 MG, OTHER
     Route: 041
     Dates: start: 20191108, end: 20200128
  2. BAYASPIRIN [Concomitant]
     Active Substance: ASPIRIN
     Indication: PLATELET COUNT INCREASED
     Dosage: 100 MG, DAILY
     Route: 048
     Dates: start: 20190404, end: 20200201
  3. TRAZENTA [Concomitant]
     Active Substance: LINAGLIPTIN
     Indication: DIABETES MELLITUS
     Dosage: 5 MG, DAILY
     Route: 048
     Dates: start: 20191214, end: 20200201
  4. CYRAMZA [Suspect]
     Active Substance: RAMUCIRUMAB
     Indication: ADENOCARCINOMA GASTRIC
     Dosage: 375 MG, OTHER
     Route: 041
     Dates: start: 20191108, end: 20200128

REACTIONS (2)
  - Pneumonia aspiration [Fatal]
  - Subarachnoid haemorrhage [Not Recovered/Not Resolved]

NARRATIVE: CASE EVENT DATE: 20200201
